FAERS Safety Report 7216387-0 (Version None)
Quarter: 2011Q1

REPORT INFORMATION
  Report Type: 
  Country: None (occurrence: None)
  Receive Date: 20110107
  Receipt Date: 20101220
  Transmission Date: 20110831
  Serious: Yes (Other)
  Sender: FDA-Public Use
  Company Number: US-MYLANLABS-2011S1000189

PATIENT
  Age: 46 Year
  Sex: Male

DRUGS (4)
  1. PRIALT [Concomitant]
  2. DURACLON [Suspect]
     Route: 037
  3. FENTANYL [Concomitant]
  4. BUPIVACAINE HCL [Concomitant]

REACTIONS (1)
  - PANCREATITIS CHRONIC [None]
